FAERS Safety Report 9095248 (Version 1)
Quarter: 2013Q1

REPORT INFORMATION
  Report Type: Spontaneous
  Country: US (occurrence: None)
  Receive Date: 20130220
  Receipt Date: 20130220
  Transmission Date: 20140127
  Serious: Yes (Other)
  Sender: FDA-Public Use
  Company Number: None

PATIENT
  Age: 35 Year
  Sex: Male

DRUGS (1)
  1. STEROID INJECTION NOS [Suspect]
     Indication: MENINGITIS FUNGAL

REACTIONS (2)
  - Product contamination [None]
  - Intervertebral disc protrusion [None]
